FAERS Safety Report 24096362 (Version 1)
Quarter: 2024Q3

REPORT INFORMATION
  Report Type: Spontaneous
  Country: US (occurrence: US)
  Receive Date: 20240716
  Receipt Date: 20240716
  Transmission Date: 20241016
  Serious: Yes (Life-Threatening, Hospitalization, Other)
  Sender: RANBAXY
  Company Number: US-SUN PHARMACEUTICAL INDUSTRIES LTD-2024R1-456430

PATIENT
  Age: 12 Year
  Sex: Female
  Weight: 41 kg

DRUGS (2)
  1. TADALAFIL [Suspect]
     Active Substance: TADALAFIL
     Indication: Right-to-left cardiac shunt
     Dosage: UNK
     Route: 065
  2. SELEXIPAG [Suspect]
     Active Substance: SELEXIPAG
     Indication: Right-to-left cardiac shunt
     Dosage: 1100 MICROGRAM, BID
     Route: 065

REACTIONS (1)
  - Condition aggravated [Unknown]
